FAERS Safety Report 9674849 (Version 1)
Quarter: 2013Q4

REPORT INFORMATION
  Report Type: Spontaneous
  Country: US (occurrence: None)
  Receive Date: 20131106
  Receipt Date: 20131106
  Transmission Date: 20140711
  Serious: Yes (Death)
  Sender: FDA-Public Use
  Company Number: None

PATIENT
  Age: 83 Year
  Sex: Female
  Weight: 74.39 kg

DRUGS (2)
  1. ZOFRAN [Suspect]
     Indication: COLON CANCER
  2. EMEND [Suspect]
     Indication: CHEMOTHERAPY

REACTIONS (1)
  - Hypotension [None]
